FAERS Safety Report 9280995 (Version 1)
Quarter: 2013Q2

REPORT INFORMATION
  Report Type: Spontaneous
  Country: US (occurrence: None)
  Receive Date: 20130508
  Receipt Date: 20130508
  Transmission Date: 20140414
  Serious: Yes (Hospitalization)
  Sender: FDA-Public Use
  Company Number: None

PATIENT
  Age: 26 Year
  Sex: Female
  Weight: 69.1 kg

DRUGS (6)
  1. PREDNISONE [Suspect]
  2. CYTARABINE [Suspect]
  3. DAUNORUBICIN [Suspect]
  4. METHOTREXATE [Suspect]
  5. PEGASPARGASE [Suspect]
  6. VINCRISTINE SULFATE [Suspect]

REACTIONS (7)
  - Headache [None]
  - Eye disorder [None]
  - Tremor [None]
  - Memory impairment [None]
  - Grand mal convulsion [None]
  - Cerebral disorder [None]
  - Posterior reversible encephalopathy syndrome [None]
